FAERS Safety Report 5156171-5 (Version None)
Quarter: 2006Q4

REPORT INFORMATION
  Report Type: 
  Country: None (occurrence: None)
  Receive Date: 20061122
  Receipt Date: 20060509
  Transmission Date: 20070319
  Serious: Yes (Hospitalization)
  Sender: FDA-Public Use
  Company Number: US-AMGEN-KDL179315

PATIENT
  Sex: Male

DRUGS (8)
  1. PROCRIT [Suspect]
     Indication: ANAEMIA OF MALIGNANT DISEASE
  2. NEURONTIN [Concomitant]
  3. VERAPAMIL [Concomitant]
  4. LASIX [Concomitant]
  5. DOXAZOSIN MESYLATE [Concomitant]
  6. HYDRALAZINE HYDROCHLORIDE [Concomitant]
  7. DIGOXIN [Concomitant]
  8. LABETALOL HCL [Concomitant]

REACTIONS (1)
  - PNEUMONIA [None]
